FAERS Safety Report 7961653-4 (Version None)
Quarter: 2011Q4

REPORT INFORMATION
  Report Type: 
  Country: None (occurrence: None)
  Receive Date: 20111121
  Receipt Date: 20110923
  Transmission Date: 20120403
  Serious: No
  Sender: FDA-Public Use
  Company Number: 1000024176

PATIENT
  Age: 49 Year
  Sex: Female

DRUGS (6)
  1. VIIBRYD [Suspect]
     Indication: BIPOLAR I DISORDER
     Dosage: 10 MG (10 MG, 1 IN 1 D), ORAL, 20 MG (20 MG, 1 IN 1 D), ORAL, 40 MG (40 MG, 1 IN 1 D), ORAL
     Route: 048
     Dates: start: 20110701, end: 20110701
  2. VIIBRYD [Suspect]
     Indication: BIPOLAR I DISORDER
     Dosage: 10 MG (10 MG, 1 IN 1 D), ORAL, 20 MG (20 MG, 1 IN 1 D), ORAL, 40 MG (40 MG, 1 IN 1 D), ORAL
     Route: 048
     Dates: start: 20110701, end: 20110701
  3. VIIBRYD [Suspect]
     Indication: BIPOLAR I DISORDER
     Dosage: 10 MG (10 MG, 1 IN 1 D), ORAL, 20 MG (20 MG, 1 IN 1 D), ORAL, 40 MG (40 MG, 1 IN 1 D), ORAL
     Route: 048
     Dates: start: 20110701
  4. KLONOPIN [Concomitant]
  5. AMBIEN [Concomitant]
  6. SEROQUEL (QUETIAPINE FUMARATE) (QUETIAPINE FUMARATE) [Concomitant]

REACTIONS (3)
  - HYPERHIDROSIS [None]
  - CHILLS [None]
  - DIARRHOEA [None]
